FAERS Safety Report 14841763 (Version 1)
Quarter: 2018Q2

REPORT INFORMATION
  Report Type: Spontaneous
  Country: BE (occurrence: BE)
  Receive Date: 20180503
  Receipt Date: 20180503
  Transmission Date: 20180711
  Serious: Yes (Other)
  Sender: FDA-Public Use
  Company Number: BE-TEVA-2018-BE-887878

PATIENT
  Age: 51 Year
  Sex: Female
  Weight: 82 kg

DRUGS (10)
  1. PACLITAXEL AUROBINDO [Concomitant]
     Indication: BREAST CANCER
     Dosage: PAS DE CHIMIO LE 21/11/2017 ET LE 19/12/2017
     Dates: start: 20171024, end: 20171226
  2. CARBOPLATINE HOSPIRA [Suspect]
     Active Substance: CARBOPLATIN
     Dosage: NO CHEMO ON 21/11/2017 AND 19/12/2017?150 MG VIAL
     Dates: start: 20171024, end: 20171226
  3. AMLOR [Concomitant]
     Active Substance: AMLODIPINE BESYLATE
     Indication: HYPERTENSION
     Route: 048
  4. AACIDEXAM [Concomitant]
     Active Substance: DEXAMETHASONE
     Indication: PREMEDICATION
     Dates: start: 20171024, end: 20171226
  5. ZANTAC [Concomitant]
     Active Substance: RANITIDINE HYDROCHLORIDE
     Indication: PREMEDICATION
     Dates: start: 20171024, end: 20171226
  6. DEXAMETHASONE. [Concomitant]
     Active Substance: DEXAMETHASONE
     Indication: PREMEDICATION
     Dosage: THE DAY AFTER CHEMOTHERAPY
     Route: 048
     Dates: start: 20171024, end: 20171226
  7. BISOPROLOL EG [Concomitant]
     Active Substance: BISOPROLOL
     Indication: HYPERTENSION
     Dosage: INCREASED TO 7.5MG SINCE EARLY DECEMBER
     Route: 048
  8. CARBOPLATIN TEVA [Suspect]
     Active Substance: CARBOPLATIN
     Dosage: NO CHEMO ON 21/11/2017 AND 19/12/2017?50 MG VIAL
     Route: 042
     Dates: start: 20171024, end: 20171226
  9. LITICAN [Concomitant]
     Active Substance: ALIZAPRIDE HYDROCHLORIDE
     Indication: PREMEDICATION
     Dates: start: 20171024, end: 20171226
  10. AZICALM [Concomitant]
     Indication: PREMEDICATION
     Route: 048
     Dates: start: 20171024, end: 20171226

REACTIONS (3)
  - Vision blurred [Unknown]
  - Visual acuity reduced [Unknown]
  - Hot flush [Unknown]

NARRATIVE: CASE EVENT DATE: 20171228
